FAERS Safety Report 7207320-6 (Version None)
Quarter: 2011Q1

REPORT INFORMATION
  Report Type: 
  Country: None (occurrence: None)
  Receive Date: 20110103
  Receipt Date: 20101231
  Transmission Date: 20110831
  Serious: Yes (Hospitalization)
  Sender: FDA-Public Use
  Company Number: BR-ROCHE-751109

PATIENT
  Sex: Female
  Weight: 73 kg

DRUGS (3)
  1. SERTRALINE HYDROCHLORIDE [Concomitant]
  2. RIVOTRIL [Suspect]
     Dosage: DOSE: 2.5 MG/ML. 10 DROPS AT NIGHT AND 3 DROPS IN THE MORNING.
     Route: 048
     Dates: start: 20060101
  3. RIVOTRIL [Suspect]
     Indication: ANXIETY
     Dosage: SHE ADMINISTERED ONE DROP IN RIGHT EYE- MEDICATION ERROR
     Route: 048

REACTIONS (5)
  - DRUG ADMINISTRATION ERROR [None]
  - UTERINE DISORDER [None]
  - DYSGEUSIA [None]
  - EYE IRRITATION [None]
  - OCULAR HYPERAEMIA [None]
